FAERS Safety Report 13737294 (Version 2)
Quarter: 2017Q3

REPORT INFORMATION
  Report Type: Spontaneous
  Country: JP (occurrence: JP)
  Receive Date: 20170710
  Receipt Date: 20170816
  Transmission Date: 20171127
  Serious: Yes (Hospitalization)
  Sender: FDA-Public Use
  Company Number: JP-BAYER-2017-126248

PATIENT
  Age: 64 Year
  Sex: Male

DRUGS (9)
  1. NEXAVAR [Suspect]
     Active Substance: SORAFENIB
     Indication: RENAL CELL CARCINOMA
     Dosage: 2DF DAILY
     Route: 048
     Dates: start: 20160830
  2. SELARA [Concomitant]
     Active Substance: EPLERENONE
     Dosage: 2DF DAILY
     Route: 048
     Dates: start: 20160824
  3. OLMETEC [Concomitant]
     Active Substance: OLMESARTAN MEDOXOMIL
     Dosage: 2DF DAILY
     Route: 048
     Dates: start: 20160824
  4. CELECOXIB. [Concomitant]
     Active Substance: CELECOXIB
     Dosage: 2DF DAILY
     Route: 048
     Dates: start: 20160824
  5. FUROSEMIDE. [Concomitant]
     Active Substance: FUROSEMIDE
     Dosage: 1DF DAILY
     Route: 048
     Dates: start: 20160824
  6. DOXAZOSIN [Concomitant]
     Active Substance: DOXAZOSIN\DOXAZOSIN MESYLATE
     Dosage: 1DF DAILY
     Route: 048
     Dates: start: 20160824
  7. BISOPROLOL FUMARATE. [Concomitant]
     Active Substance: BISOPROLOL FUMARATE
     Dosage: 1DF DAILY
     Route: 048
     Dates: start: 20160824
  8. NEXAVAR [Suspect]
     Active Substance: SORAFENIB
     Indication: RENAL CELL CARCINOMA
     Dosage: 4DF DAILY
     Route: 048
     Dates: start: 20160824, end: 20160829
  9. FEBUXOSTAT. [Concomitant]
     Active Substance: FEBUXOSTAT
     Dosage: 4DF DAILY
     Route: 048
     Dates: start: 20160824

REACTIONS (3)
  - Intermittent claudication [Recovered/Resolved]
  - Peripheral artery stenosis [Recovered/Resolved]
  - Feeling cold [Recovered/Resolved]

NARRATIVE: CASE EVENT DATE: 201705
